FAERS Safety Report 17762284 (Version 2)
Quarter: 2020Q3

REPORT INFORMATION
  Report Type: Spontaneous
  Country: FR (occurrence: FR)
  Receive Date: 20200508
  Receipt Date: 20200918
  Transmission Date: 20201102
  Serious: Yes (Life-Threatening, Other)
  Sender: FDA-Public Use
  Company Number: FR-TEVA-2020-FR-1232943

PATIENT
  Age: 70 Year
  Sex: Female
  Weight: 46.3 kg

DRUGS (4)
  1. RITUXIMAB ((MAMMIFERE/HAMSTER/CELLULES CHO)) [Suspect]
     Active Substance: RITUXIMAB
     Indication: CHRONIC LYMPHOCYTIC LEUKAEMIA
     Dosage: 1 INJECTION PER WEEK DURING 4 WEEKS THEN ON 03?FEB?2020 AND 02?MAR?2020
     Route: 041
     Dates: start: 20191216
  2. BENDAMUSTINE HYDROCHLORIDE. [Suspect]
     Active Substance: BENDAMUSTINE HYDROCHLORIDE
     Indication: CHRONIC LYMPHOCYTIC LEUKAEMIA
     Route: 041
     Dates: start: 20200203, end: 20200302
  3. PRAVASTATIN SODIUM. [Concomitant]
     Active Substance: PRAVASTATIN SODIUM
     Indication: PRODUCT USED FOR UNKNOWN INDICATION
     Dosage: 40 MILLIGRAM DAILY;
     Route: 048
  4. GAVISCON [Concomitant]
     Active Substance: ALUMINUM HYDROXIDE\MAGNESIUM CARBONATE
     Indication: PRODUCT USED FOR UNKNOWN INDICATION
     Route: 048

REACTIONS (2)
  - Acute pulmonary oedema [Recovered/Resolved]
  - Product use issue [Unknown]

NARRATIVE: CASE EVENT DATE: 20200303
